FAERS Safety Report 5912503-9 (Version None)
Quarter: 2008Q4

REPORT INFORMATION
  Report Type: 
  Country: None (occurrence: None)
  Receive Date: 20081007
  Receipt Date: 20081007
  Transmission Date: 20090506
  Serious: Yes (Hospitalization)
  Sender: FDA-Public Use
  Company Number: None

PATIENT
  Age: 68 Year
  Sex: Female
  Weight: 86.4 kg

DRUGS (1)
  1. INFLIXIMAB CENTOCOR [Suspect]
     Indication: RHEUMATOID ARTHRITIS
     Dates: start: 20060801, end: 20080801

REACTIONS (3)
  - LUNG NEOPLASM [None]
  - PYREXIA [None]
  - SKIN LESION [None]
